FAERS Safety Report 10375833 (Version 1)
Quarter: 2014Q1

REPORT INFORMATION
  Report Type: Spontaneous
  Country: US (occurrence: None)
  Receive Date: 20140306
  Receipt Date: 20140306
  Transmission Date: 20141002
  Serious: Yes (Other)
  Sender: FDA-Public Use
  Company Number: 163-21880-13110888

PATIENT
  Age: 86 Year
  Sex: Female
  Weight: 56.7 kg

DRUGS (3)
  1. REVLIMID (LENALIDOMIDE) (5 MILLIGRAM, CAPSULES) [Suspect]
     Indication: MYELODYSPLASTIC SYNDROME
     Route: 048
     Dates: start: 20120119
  2. ASPIRIN(ACETYLSALICYLIC ACID) [Suspect]
  3. BACTRIM (BACTRIM) (SULFAMETHOXAZOLE, TRIMETHOPRIM) [Concomitant]

REACTIONS (4)
  - Atrial fibrillation [None]
  - Blister [None]
  - Oedema peripheral [None]
  - Diarrhoea [None]
